FAERS Safety Report 14741674 (Version 4)
Quarter: 2018Q2

REPORT INFORMATION
  Report Type: Spontaneous
  Country: AE (occurrence: AE)
  Receive Date: 20180410
  Receipt Date: 20180528
  Transmission Date: 20180711
  Serious: Yes (Other)
  Sender: FDA-Public Use
  Company Number: AE-AMGEN-ARESP2018047937

PATIENT
  Age: 60 Year
  Sex: Female

DRUGS (4)
  1. ENBREL [Suspect]
     Active Substance: ETANERCEPT
     Indication: RHEUMATOID ARTHRITIS
     Dosage: 50 MG, ONCE EVERY 15 DAYS
     Route: 058
     Dates: start: 20130413, end: 201804
  2. HYABAK [Concomitant]
     Active Substance: HYALURONATE SODIUM
     Dosage: UNK, 4 TIMES A DAY FOR ONE MONTH
     Dates: start: 20180402, end: 20180501
  3. EMADINE [Concomitant]
     Active Substance: EMEDASTINE DIFUMARATE
     Dosage: TWO TIMES A DAY FOR ONE MONTH
     Dates: start: 20180402, end: 20180501
  4. OPTIDEX [Concomitant]
     Dosage: UNK, 4 TIMES A DAY FOR ONE WEEK
     Dates: start: 20180402, end: 20180408

REACTIONS (2)
  - Product use issue [Unknown]
  - Uveitis [Recovered/Resolved]

NARRATIVE: CASE EVENT DATE: 20130413
